FAERS Safety Report 7792071-X (Version None)
Quarter: 2011Q3

REPORT INFORMATION
  Report Type: 
  Country: None (occurrence: None)
  Receive Date: 20110930
  Receipt Date: 20110930
  Transmission Date: 20111222
  Serious: Yes (Disabling)
  Sender: FDA-Public Use
  Company Number: None

PATIENT
  Sex: Male
  Weight: 77.1115 kg

DRUGS (6)
  1. VERAPAMIL [Concomitant]
  2. FUROSEMIDE [Concomitant]
  3. LIPITOR [Concomitant]
  4. BYSTOLIC [Concomitant]
  5. KHLOR-CON [Concomitant]
  6. DONEPEZIL HCL [Suspect]
     Indication: DEMENTIA ALZHEIMER'S TYPE
     Dosage: 1-10MG DAILY ORAL
     Route: 048
     Dates: start: 20110827, end: 20110903

REACTIONS (5)
  - PRODUCT SUBSTITUTION ISSUE [None]
  - MEMORY IMPAIRMENT [None]
  - DEMENTIA ALZHEIMER'S TYPE [None]
  - DYSPNOEA [None]
  - CONDITION AGGRAVATED [None]
